FAERS Safety Report 7985283-3 (Version None)
Quarter: 2011Q4

REPORT INFORMATION
  Report Type: 
  Country: None (occurrence: None)
  Receive Date: 20111214
  Receipt Date: 20111207
  Transmission Date: 20120403
  Serious: Yes (Life-Threatening, Hospitalization, Disabling, Other)
  Sender: FDA-Public Use
  Company Number: 2011SP057312

PATIENT
  Age: 61 Year
  Sex: Male
  Weight: 68.5 kg

DRUGS (15)
  1. PANTOPRAZOLE [Concomitant]
  2. EBASTINE [Concomitant]
  3. DEXAMETHASONE TAB [Concomitant]
  4. LEUCOVORIN CALCIUM [Concomitant]
  5. VITAMIN B1 TAB [Concomitant]
  6. TETRAZEPAM [Concomitant]
  7. SIMVASTATIN [Concomitant]
  8. RAMIPRIL [Concomitant]
  9. ASPIRIN [Concomitant]
  10. TEGRETOL [Concomitant]
  11. IRINOTECAN HCL [Suspect]
     Indication: GLIOBLASTOMA MULTIFORME
     Dosage: 606 MG;QOW;IV
     Route: 042
     Dates: start: 20100914
  12. BEVACIZUMAB (BEVACIZUMAB) [Suspect]
     Indication: GLIOBLASTOMA MULTIFORME
     Dosage: 3690MG;QOW
     Dates: start: 20100803
  13. TEMOZOLOMIDE [Suspect]
     Indication: GLIOBLASTOMA MULTIFORME
     Dosage: 250 MG;PO
     Route: 048
     Dates: start: 20111114, end: 20111117
  14. METOCLOPRAMIDE [Concomitant]
  15. CARBAMAZEPINE [Concomitant]

REACTIONS (6)
  - GLIOBLASTOMA [None]
  - THROMBOCYTOPENIA [None]
  - HEMIPARESIS [None]
  - LEUKOPENIA [None]
  - NEOPLASM PROGRESSION [None]
  - EPISTAXIS [None]
